FAERS Safety Report 7307779-X (Version None)
Quarter: 2011Q1

REPORT INFORMATION
  Report Type: 
  Country: None (occurrence: None)
  Receive Date: 20110223
  Receipt Date: 20110218
  Transmission Date: 20110831
  Serious: No
  Sender: FDA-Public Use
  Company Number: US-TEVA-268059USA

PATIENT
  Sex: Female

DRUGS (2)
  1. PLAN B ONE-STEP [Suspect]
     Route: 048
     Dates: start: 20110218, end: 20110218
  2. PLAN B ONE-STEP [Suspect]
     Indication: POST COITAL CONTRACEPTION
     Route: 048
     Dates: start: 20110216, end: 20110216

REACTIONS (4)
  - FATIGUE [None]
  - NAUSEA [None]
  - ABDOMINAL PAIN LOWER [None]
  - ANXIETY [None]
